FAERS Safety Report 13983866 (Version 1)
Quarter: 2017Q3

REPORT INFORMATION
  Report Type: Spontaneous
  Country: US (occurrence: US)
  Receive Date: 20170918
  Receipt Date: 20170918
  Transmission Date: 20171128
  Serious: No
  Sender: FDA-Public Use
  Company Number: US-LPDUSPRD-20170111

PATIENT
  Sex: Female

DRUGS (1)
  1. INJECTAFER [Suspect]
     Active Substance: FERRIC CARBOXYMALTOSE
     Dosage: 750 MG X 2 DOSES 1 WEEK APART
     Route: 042
     Dates: start: 201701, end: 201701

REACTIONS (1)
  - Peripheral swelling [Recovered/Resolved]
